FAERS Safety Report 15517602 (Version 4)
Quarter: 2019Q1

REPORT INFORMATION
  Report Type: Report from Study
  Country: FR (occurrence: FR)
  Receive Date: 20181017
  Receipt Date: 20190123
  Transmission Date: 20190417
  Serious: Yes (Hospitalization)
  Sender: FDA-Public Use
  Company Number: PHHO2018FR004257

PATIENT
  Age: 64 Year
  Sex: Female
  Weight: 49 kg

DRUGS (1)
  1. METHOTREXATE. [Suspect]
     Active Substance: METHOTREXATE
     Indication: ACUTE GRAFT VERSUS HOST DISEASE
     Dosage: 3 MG, Q2W
     Route: 042
     Dates: start: 20180205

REACTIONS (2)
  - Hyperkalaemia [Recovered/Resolved]
  - Mononeuropathy [Not Recovered/Not Resolved]

NARRATIVE: CASE EVENT DATE: 20180303
